FAERS Safety Report 8204602-6 (Version None)
Quarter: 2012Q1

REPORT INFORMATION
  Report Type: 
  Country: None (occurrence: None)
  Receive Date: 20120313
  Receipt Date: 20120309
  Transmission Date: 20120608
  Serious: Yes (Hospitalization)
  Sender: FDA-Public Use
  Company Number: IT-SANOFI-AVENTIS-2011SA065519

PATIENT
  Age: 72 Year
  Sex: Female

DRUGS (2)
  1. ZOLPIDEM [Suspect]
     Indication: INSOMNIA
     Route: 048
     Dates: start: 20110720, end: 20110725
  2. PAROXETINE [Suspect]
     Indication: ANXIETY
     Route: 048
     Dates: start: 20110720, end: 20110725

REACTIONS (2)
  - INTENTIONAL SELF-INJURY [None]
  - INSOMNIA [None]
